FAERS Safety Report 11019191 (Version 2)
Quarter: 2015Q2

REPORT INFORMATION
  Report Type: Spontaneous
  Country: US (occurrence: US)
  Receive Date: 20150412
  Receipt Date: 20150525
  Transmission Date: 20150821
  Serious: Yes (Hospitalization, Other)
  Sender: FDA-Public Use
  Company Number: US-JNJFOC-20100804723

PATIENT
  Age: 57 Year
  Sex: Male

DRUGS (5)
  1. LEVAQUIN [Suspect]
     Active Substance: LEVOFLOXACIN
     Indication: INFECTION
     Route: 048
     Dates: start: 20020301, end: 20020731
  2. LEVAQUIN [Suspect]
     Active Substance: LEVOFLOXACIN
     Indication: LOCALISED INFECTION
     Route: 048
     Dates: start: 20020301, end: 20020731
  3. LEVAQUIN [Suspect]
     Active Substance: LEVOFLOXACIN
     Indication: PRODUCT USED FOR UNKNOWN INDICATION
     Route: 050
  4. LISINOPRIL. [Concomitant]
     Active Substance: LISINOPRIL
     Indication: HYPERTENSION
     Route: 065
  5. SIMVASTATIN. [Concomitant]
     Active Substance: SIMVASTATIN
     Indication: BLOOD CHOLESTEROL INCREASED
     Route: 065

REACTIONS (3)
  - Depression [Unknown]
  - Rotator cuff syndrome [Unknown]
  - Tenosynovitis [Unknown]

NARRATIVE: CASE EVENT DATE: 200404
